FAERS Safety Report 24624185 (Version 2)
Quarter: 2025Q3

REPORT INFORMATION
  Report Type: Report from Study
  Country: DO (occurrence: DO)
  Receive Date: 20241115
  Receipt Date: 20250810
  Transmission Date: 20251020
  Serious: Yes (Death, Other)
  Sender: ALEXION PHARMACEUTICALS
  Company Number: DO-AstraZeneca-CH-00735270A

PATIENT
  Sex: Female

DRUGS (1)
  1. SAPHNELO [Suspect]
     Active Substance: ANIFROLUMAB-FNIA
     Dosage: 300 MILLIGRAM, QMONTH

REACTIONS (2)
  - Death [Fatal]
  - Fluid retention [Fatal]

NARRATIVE: CASE EVENT DATE: 20221018
